FAERS Safety Report 5038857-6 (Version None)
Quarter: 2006Q2

REPORT INFORMATION
  Report Type: 
  Country: None (occurrence: None)
  Receive Date: 20060628
  Receipt Date: 20060628
  Transmission Date: 20061013
  Serious: Yes (Other)
  Sender: FDA-Public Use
  Company Number: None

PATIENT
  Sex: Female
  Weight: 78.4723 kg

DRUGS (3)
  1. WELLBUTRIN XL [Suspect]
     Indication: BIPOLAR I DISORDER
     Dosage: 450 MG XL Q AM
     Dates: start: 20040301
  2. LAMICTAL [Concomitant]
  3. PROVIGIL [Concomitant]

REACTIONS (7)
  - ACCIDENTAL EXPOSURE [None]
  - ASTHENIA [None]
  - COORDINATION ABNORMAL [None]
  - DYSPHONIA [None]
  - MUSCLE TWITCHING [None]
  - RESPIRATORY SIGHS [None]
  - URINARY TRACT INFECTION [None]
